FAERS Safety Report 8543006-3 (Version None)
Quarter: 2012Q3

REPORT INFORMATION
  Report Type: 
  Country: None (occurrence: None)
  Receive Date: 20120727
  Receipt Date: 20120720
  Transmission Date: 20120928
  Serious: Yes (Other)
  Sender: FDA-Public Use
  Company Number: GB-JNJFOC-20120711545

PATIENT
  Sex: Female

DRUGS (2)
  1. GOLIMUMAB [Suspect]
     Route: 058
  2. GOLIMUMAB [Suspect]
     Indication: PRODUCT USED FOR UNKNOWN INDICATION
     Route: 058
     Dates: start: 20120704

REACTIONS (1)
  - ROTATOR CUFF SYNDROME [None]
